FAERS Safety Report 9200635 (Version 1)
Quarter: 2013Q1

REPORT INFORMATION
  Report Type: Spontaneous
  Country: US (occurrence: US)
  Receive Date: 20130330
  Receipt Date: 20130330
  Transmission Date: 20140127
  Serious: No
  Sender: FDA-Public Use
  Company Number: US-PFIZER INC-2013100873

PATIENT
  Age: 6 Decade
  Sex: Female

DRUGS (3)
  1. LYRICA [Suspect]
     Indication: FIBROMYALGIA
     Dosage: 75 MG, 1X/DAY
     Dates: start: 2001
  2. OXYCODONE HYDROCHLORIDE [Suspect]
     Indication: PAIN
     Dosage: UNK, 1X/DAY
     Dates: start: 2010
  3. OXYCODONE HYDROCHLORIDE [Suspect]
     Dosage: (10-20 MG), 1X/DAY
     Dates: start: 201211

REACTIONS (5)
  - Drug ineffective [Unknown]
  - Pre-existing condition improved [Unknown]
  - Therapeutic response unexpected [Unknown]
  - Vision blurred [Unknown]
  - Disturbance in attention [Unknown]
